FAERS Safety Report 14762246 (Version 1)
Quarter: 2018Q2

REPORT INFORMATION
  Report Type: Spontaneous
  Country: US (occurrence: US)
  Receive Date: 20180416
  Receipt Date: 20180416
  Transmission Date: 20180711
  Serious: No
  Sender: FDA-Public Use
  Company Number: US-BION-006865

PATIENT
  Age: 66 Year
  Sex: Female

DRUGS (3)
  1. ALEVE [Suspect]
     Active Substance: NAPROXEN SODIUM
     Indication: INFLAMMATION
     Dosage: 2 TWICE DAILY
     Route: 048
     Dates: start: 201710
  2. LEVOTHYROXINE. [Concomitant]
     Active Substance: LEVOTHYROXINE
  3. BISOPROLOL HCTZ [Concomitant]

REACTIONS (4)
  - Drug prescribing error [Not Recovered/Not Resolved]
  - Accidental overdose [Not Recovered/Not Resolved]
  - Incorrect drug administration duration [Not Recovered/Not Resolved]
  - Incorrect dose administered [Not Recovered/Not Resolved]

NARRATIVE: CASE EVENT DATE: 201710
